FAERS Safety Report 10279917 (Version 1)
Quarter: 2014Q3

REPORT INFORMATION
  Report Type: Spontaneous
  Country: AU (occurrence: None)
  Receive Date: 20140701
  Receipt Date: 20140701
  Transmission Date: 20150326
  Serious: Yes (Other)
  Sender: FDA-Public Use
  Company Number: 2014AJA00003

PATIENT

DRUGS (2)
  1. LEVETIRACETAM. [Suspect]
     Active Substance: LEVETIRACETAM
  2. LAMOTRIGINE. [Suspect]
     Active Substance: LAMOTRIGINE

REACTIONS (4)
  - Drug interaction [None]
  - Drug level above therapeutic [None]
  - Toxicity to various agents [None]
  - Convulsion [None]

NARRATIVE: CASE EVENT DATE: 20140218
